FAERS Safety Report 9993387 (Version 2)
Quarter: 2014Q1

REPORT INFORMATION
  Report Type: Spontaneous
  Country: CO (occurrence: CO)
  Receive Date: 20140310
  Receipt Date: 20140313
  Transmission Date: 20141002
  Serious: Yes (Other)
  Sender: FDA-Public Use
  Company Number: CO-PFIZER INC-2014068436

PATIENT
  Age: 9 Year
  Sex: Male

DRUGS (2)
  1. SOMATROPIN [Suspect]
     Indication: GROWTH HORMONE DEFICIENCY
     Dosage: 1.35 MG, DAILY
     Route: 058
     Dates: start: 2009
  2. LEVOTHYROXINE [Concomitant]
     Dosage: 25 UG, DAILY
     Route: 048
     Dates: start: 2009

REACTIONS (1)
  - Gastroenteritis [Recovered/Resolved]
